FAERS Safety Report 14655229 (Version 2)
Quarter: 2018Q2

REPORT INFORMATION
  Report Type: Report from Study
  Country: US (occurrence: US)
  Receive Date: 20180319
  Receipt Date: 20180430
  Transmission Date: 20180711
  Serious: Yes (Hospitalization, Other)
  Sender: FDA-Public Use
  Company Number: PHEH2018US009556

PATIENT
  Age: 70 Year
  Sex: Male
  Weight: 111.11 kg

DRUGS (1)
  1. COSENTYX [Suspect]
     Active Substance: SECUKINUMAB
     Indication: PSORIASIS
     Dosage: 300 MG, Q4W
     Route: 058
     Dates: start: 20151105

REACTIONS (5)
  - Subdural haematoma [Recovering/Resolving]
  - Speech disorder [Recovered/Resolved]
  - Cerebral haemorrhage [Recovered/Resolved]
  - Inappropriate schedule of drug administration [Unknown]
  - Headache [Unknown]

NARRATIVE: CASE EVENT DATE: 20151105
